FAERS Safety Report 24662524 (Version 1)
Quarter: 2024Q4

REPORT INFORMATION
  Report Type: Spontaneous
  Country: US (occurrence: US)
  Receive Date: 20241126
  Receipt Date: 20241126
  Transmission Date: 20250114
  Serious: No
  Sender: HETERO
  Company Number: US-HETERO-HET2024US04251

PATIENT
  Sex: Male
  Weight: 108 kg

DRUGS (1)
  1. ARIPIPRAZOLE [Suspect]
     Active Substance: ARIPIPRAZOLE
     Indication: Schizophrenia
     Dosage: 5 MILLIGRAM, QD (BOTTLE OF 30 TABLETS)
     Route: 048
     Dates: start: 20241113

REACTIONS (5)
  - Psychotic disorder [Not Recovered/Not Resolved]
  - Depressed mood [Not Recovered/Not Resolved]
  - Dyspnoea [Not Recovered/Not Resolved]
  - Mania [Not Recovered/Not Resolved]
  - Fatigue [Not Recovered/Not Resolved]
